FAERS Safety Report 10074299 (Version 5)
Quarter: 2014Q4

REPORT INFORMATION
  Report Type: Spontaneous
  Country: US (occurrence: US)
  Receive Date: 20140413
  Receipt Date: 20141013
  Transmission Date: 20150528
  Serious: No
  Sender: FDA-Public Use
  Company Number: US-009507513-1404USA004050

PATIENT
  Sex: Male
  Weight: 82.99 kg

DRUGS (4)
  1. PROPECIA [Suspect]
     Active Substance: FINASTERIDE
     Indication: ALOPECIA
     Dosage: 1 MG, QD
     Route: 048
     Dates: start: 20010912, end: 20011231
  2. PROPECIA [Suspect]
     Active Substance: FINASTERIDE
     Dosage: 1 MG, QD
     Route: 048
     Dates: start: 20030102, end: 20050922
  3. PROPECIA [Suspect]
     Active Substance: FINASTERIDE
     Dosage: 1 MG, QD
     Route: 048
     Dates: start: 20071228, end: 201012
  4. PROPECIA [Suspect]
     Active Substance: FINASTERIDE
     Dosage: 1 MG, QD
     Route: 048
     Dates: start: 20061009, end: 20071126

REACTIONS (15)
  - Prostate tenderness [Unknown]
  - Anxiety [Unknown]
  - Cough [Recovering/Resolving]
  - Depression [Unknown]
  - Testicular disorder [Unknown]
  - Emotional distress [Unknown]
  - Nasopharyngitis [Recovering/Resolving]
  - Erectile dysfunction [Not Recovered/Not Resolved]
  - Painful ejaculation [Unknown]
  - Melanocytic naevus [Unknown]
  - Oropharyngeal pain [Recovering/Resolving]
  - Epididymal cyst [Unknown]
  - Lymphadenopathy [Unknown]
  - Sexual dysfunction [Not Recovered/Not Resolved]
  - Pyrexia [Recovering/Resolving]

NARRATIVE: CASE EVENT DATE: 2004
